FAERS Safety Report 6172940-7 (Version None)
Quarter: 2009Q2

REPORT INFORMATION
  Report Type: 
  Country: None (occurrence: None)
  Receive Date: 20090430
  Receipt Date: 20090423
  Transmission Date: 20091009
  Serious: No
  Sender: FDA-Public Use
  Company Number: US-B.I. PHARMACEUTICALS,INC./RIDGEFIELD-2009-BP-05147BP

PATIENT
  Sex: Male

DRUGS (10)
  1. ZANTAC 150 [Suspect]
     Indication: DYSPEPSIA
     Dosage: 150MG
     Route: 048
     Dates: start: 20090423, end: 20090423
  2. ZANTAC 150 [Suspect]
     Indication: ABDOMINAL DISCOMFORT
  3. METOPROLOL TARTRATE [Concomitant]
     Indication: CARDIAC DISORDER
     Route: 048
  4. METOPROLOL TARTRATE [Concomitant]
     Indication: BLOOD PRESSURE INCREASED
  5. ENALAPRIL [Concomitant]
     Indication: CARDIAC DISORDER
     Route: 048
  6. ENALAPRIL [Concomitant]
     Indication: BLOOD PRESSURE INCREASED
  7. PRAVASTATIN [Concomitant]
     Indication: BLOOD CHOLESTEROL
     Route: 048
  8. TRICOR [Concomitant]
     Indication: BLOOD CHOLESTEROL
     Route: 048
  9. AMLODIPINE BESYLATE [Concomitant]
     Indication: HYPERTENSION
     Route: 048
  10. PERCOCET [Concomitant]
     Indication: PAIN
     Route: 048

REACTIONS (1)
  - PALPITATIONS [None]
